FAERS Safety Report 9735444 (Version 1)
Quarter: 2013Q4

REPORT INFORMATION
  Report Type: Spontaneous
  Country: US (occurrence: None)
  Receive Date: 20131205
  Receipt Date: 20131205
  Transmission Date: 20140711
  Serious: Yes (Hospitalization, Disabling)
  Sender: FDA-Public Use
  Company Number: None

PATIENT
  Age: 26 Year
  Sex: Female
  Weight: 81.65 kg

DRUGS (10)
  1. MIRENA [Suspect]
     Indication: CONTRACEPTION
     Dosage: 20 MICROGRAMS/DAY?INSERTED INTO UTERUS
     Route: 015
     Dates: start: 200803, end: 201303
  2. TOPAMAX [Concomitant]
  3. WELLBUTRIN [Concomitant]
  4. OXYCODONE [Concomitant]
  5. AMBIEN [Concomitant]
  6. PARAGAURD [Concomitant]
  7. MEDICAL MARIJUANA [Concomitant]
  8. MELATONIN [Concomitant]
  9. TUMS(CALCIUM) [Concomitant]
  10. PROBIOTIC [Concomitant]

REACTIONS (5)
  - Post procedural discomfort [None]
  - Benign intracranial hypertension [None]
  - Migraine [None]
  - Drug ineffective [None]
  - Papilloedema [None]
